FAERS Safety Report 8815968 (Version 2)
Quarter: 2012Q4

REPORT INFORMATION
  Report Type: 
  Country: US (occurrence: US)
  Receive Date: 20120928
  Receipt Date: 20121012
  Transmission Date: 20130627
  Serious: Yes (Hospitalization, Other)
  Sender: FDA-Public Use
  Company Number: US-ROCHE-1129294

PATIENT
  Age: 72 Year
  Sex: Female

DRUGS (8)
  1. AVASTIN [Suspect]
     Indication: BREAST CANCER FEMALE
     Route: 065
     Dates: start: 20060627, end: 20060919
  2. AVASTIN [Suspect]
     Indication: METASTASES TO LIVER
  3. CAPECITABINE [Suspect]
     Indication: BREAST CANCER FEMALE
     Route: 065
     Dates: start: 20050110, end: 20051007
  4. CAPECITABINE [Suspect]
     Route: 065
  5. CAPECITABINE [Suspect]
     Route: 065
     Dates: end: 20051007
  6. TAXOL [Concomitant]
  7. TAMOXIFEN [Concomitant]
  8. TAXOTERE [Concomitant]
     Route: 065
     Dates: start: 20060627

REACTIONS (8)
  - Metastases to liver [Unknown]
  - Lymphadenopathy [Unknown]
  - Retroperitoneal lymphadenopathy [Unknown]
  - Drug ineffective [Unknown]
  - Nausea [Recovered/Resolved]
  - Vomiting [Recovered/Resolved]
  - Dehydration [Recovered/Resolved]
  - Constipation [Recovered/Resolved]
